FAERS Safety Report 4421272-3 (Version None)
Quarter: 2004Q3

REPORT INFORMATION
  Report Type: 
  Country: None (occurrence: None)
  Receive Date: 20040706
  Receipt Date: 20040322
  Transmission Date: 20050211
  Serious: No
  Sender: FDA-Public Use
  Company Number: 236037

PATIENT
  Age: 32 Year
  Sex: Female

DRUGS (2)
  1. NOVOLOG [Suspect]
     Indication: DIABETES MELLITUS INSULIN-DEPENDENT
     Dosage: 24 IU, QD, SUBCUTAN.-PUMP
     Route: 058
     Dates: start: 20031201
  2. INSULIN PUMP [Concomitant]

REACTIONS (2)
  - PRURITUS GENERALISED [None]
  - URTICARIA GENERALISED [None]
